FAERS Safety Report 7805160-8 (Version None)
Quarter: 2011Q4

REPORT INFORMATION
  Report Type: 
  Country: None (occurrence: None)
  Receive Date: 20111010
  Receipt Date: 20110928
  Transmission Date: 20120403
  Serious: Yes (Other)
  Sender: FDA-Public Use
  Company Number: US-ROCHE-705119

PATIENT
  Sex: Female

DRUGS (3)
  1. AVASTIN [Suspect]
     Indication: BREAST CANCER METASTATIC
     Dosage: ADMINISTERED ON DAYS 1 AND 15
     Route: 042
  2. PACLITAXEL [Suspect]
     Indication: BREAST CANCER METASTATIC
     Dosage: OVER ONE HOUR ON DAYS 1, 8 AND 15
     Route: 042
  3. GEMCITABINE HYDROCHLORIDE [Suspect]
     Indication: BREAST CANCER METASTATIC
     Dosage: ADMINISTERED OVER 30 MINUTES ON DAYS 1 AND 15.
     Route: 042

REACTIONS (25)
  - THROMBOCYTOPENIA [None]
  - NEUROPATHY PERIPHERAL [None]
  - HYPERTENSION [None]
  - DYSPNOEA [None]
  - THROMBOSIS [None]
  - PULMONARY EMBOLISM [None]
  - FEBRILE NEUTROPENIA [None]
  - NAUSEA [None]
  - CONSTIPATION [None]
  - ALANINE AMINOTRANSFERASE INCREASED [None]
  - DIARRHOEA [None]
  - DECREASED APPETITE [None]
  - WEIGHT DECREASED [None]
  - DEEP VEIN THROMBOSIS [None]
  - PYREXIA [None]
  - NEUTROPENIA [None]
  - LEUKOPENIA [None]
  - HEADACHE [None]
  - STOMATITIS [None]
  - ASTHENIA [None]
  - ANAEMIA [None]
  - FATIGUE [None]
  - ASPARTATE AMINOTRANSFERASE INCREASED [None]
  - CARDIAC FAILURE CONGESTIVE [None]
  - CARDIOMYOPATHY [None]
